FAERS Safety Report 8267043-1 (Version None)
Quarter: 2012Q2

REPORT INFORMATION
  Report Type: 
  Country: None (occurrence: None)
  Receive Date: 20120409
  Receipt Date: 20120403
  Transmission Date: 20120825
  Serious: No
  Sender: FDA-Public Use
  Company Number: US-PFIZER INC-2012084446

PATIENT
  Sex: Female
  Weight: 80 kg

DRUGS (6)
  1. CLONAZEPAM [Concomitant]
     Indication: ANXIETY
     Dosage: 0.5 MG, AS NEEDED
  2. LYRICA [Suspect]
     Indication: FIBROMYALGIA
     Dosage: 50 MG, 2X/DAY
     Dates: start: 20120301, end: 20120301
  3. LYRICA [Suspect]
     Indication: ARTHRITIS
     Dosage: UNK
     Dates: start: 20120101
  4. ISORBID [Concomitant]
     Indication: CHEST PAIN
     Dosage: DAILY
  5. LYRICA [Suspect]
     Indication: MYALGIA
     Dosage: 75 MG, 2X/DAY
     Dates: end: 20120201
  6. METOPROLOL [Concomitant]
     Indication: BLOOD PRESSURE ABNORMAL
     Dosage: 25 MG, 2X/DAY

REACTIONS (5)
  - WEIGHT DECREASED [None]
  - ARTHRITIS [None]
  - MYALGIA [None]
  - EXPIRED DRUG ADMINISTERED [None]
  - FEELING ABNORMAL [None]
